FAERS Safety Report 6717623-7 (Version None)
Quarter: 2010Q2

REPORT INFORMATION
  Report Type: 
  Country: None (occurrence: None)
  Receive Date: 20100503
  Receipt Date: 20100421
  Transmission Date: 20101027
  Serious: Yes (Other)
  Sender: FDA-Public Use
  Company Number: 010948

PATIENT
  Age: 24 Year
  Sex: Female

DRUGS (2)
  1. LEVETIRACETAM [Suspect]
     Indication: GRAND MAL CONVULSION
  2. LAMOTRIGINE [Suspect]
     Indication: GRAND MAL CONVULSION

REACTIONS (4)
  - DRUG INEFFECTIVE [None]
  - HYPERGLYCAEMIA [None]
  - KETOSIS [None]
  - NARCOLEPSY [None]
